FAERS Safety Report 8864085 (Version 1)
Quarter: 2012Q4

REPORT INFORMATION
  Report Type: 
  Country: US (occurrence: US)
  Receive Date: 20121024
  Receipt Date: 20121024
  Transmission Date: 20130627
  Serious: No
  Sender: FDA-Public Use
  Company Number: US-AMGEN-USASP2011065548

PATIENT
  Sex: Female

DRUGS (4)
  1. ENBREL [Suspect]
     Indication: PRODUCT USED FOR UNKNOWN INDICATION
     Dosage: 50 mg, qwk
     Route: 058
  2. NAPROXEN [Concomitant]
     Dosage: 500 mg, UNK
  3. PHENERGAN [Concomitant]
     Dosage: 25 mg, UNK
  4. HYDROCODONE/APAP [Concomitant]
     Dosage: UNK

REACTIONS (1)
  - Headache [Unknown]
